FAERS Safety Report 6541056-X (Version None)
Quarter: 2010Q1

REPORT INFORMATION
  Report Type: 
  Country: None (occurrence: None)
  Receive Date: 20100118
  Receipt Date: 20100112
  Transmission Date: 20100710
  Serious: Yes (Other)
  Sender: FDA-Public Use
  Company Number: US-JNJCH-2010000794

PATIENT
  Age: 62 Year
  Sex: Female
  Weight: 61.2 kg

DRUGS (1)
  1. BENADRYL CHILDREN'S ALLERGY FASTMELT [Suspect]
     Indication: HYPERSENSITIVITY
     Dosage: TEXT:4 PILLS
     Route: 048

REACTIONS (3)
  - ANAPHYLACTIC SHOCK [None]
  - BLOOD PRESSURE INCREASED [None]
  - SLEEP DISORDER [None]
